FAERS Safety Report 4957870-8 (Version None)
Quarter: 2006Q1

REPORT INFORMATION
  Report Type: 
  Country: None (occurrence: None)
  Receive Date: 20060324
  Receipt Date: 20060314
  Transmission Date: 20060701
  Serious: Yes (Hospitalization)
  Sender: FDA-Public Use
  Company Number: 213814

PATIENT
  Age: 67 Year
  Sex: Male

DRUGS (6)
  1. METALYSE (TENECTEPLASE) PWDR + SOLVENT, INJECTION SOLN, 50MG [Suspect]
     Indication: ACUTE MYOCARDIAL INFARCTION
     Dosage: 8000 UNIT, INTRAVENOUS
     Route: 042
  2. ASPIRIN [Concomitant]
  3. ENOXAPARIN SODIUM [Concomitant]
  4. HEPARIN [Concomitant]
  5. LOSARTAN (LOSARTAN POTASSIUM) [Concomitant]
  6. DOXAZOSIN MESYLATE [Concomitant]

REACTIONS (4)
  - HYPERHIDROSIS [None]
  - MEDIASTINAL HAEMATOMA [None]
  - PROCEDURAL COMPLICATION [None]
  - VOMITING [None]
